FAERS Safety Report 4950373-6 (Version None)
Quarter: 2006Q1

REPORT INFORMATION
  Report Type: 
  Country: None (occurrence: None)
  Receive Date: 20060322
  Receipt Date: 20060310
  Transmission Date: 20060701
  Serious: Yes (Hospitalization)
  Sender: FDA-Public Use
  Company Number: JP-JNJFOC-20060201226

PATIENT
  Sex: Female
  Weight: 42 kg

DRUGS (19)
  1. REMICADE [Suspect]
     Route: 042
  2. REMICADE [Suspect]
     Route: 042
  3. REMICADE [Suspect]
     Route: 042
  4. REMICADE [Suspect]
     Route: 042
  5. REMICADE [Suspect]
     Indication: RHEUMATOID ARTHRITIS
     Route: 042
  6. RHEUMATREX [Suspect]
     Route: 048
  7. RHEUMATREX [Suspect]
     Indication: RHEUMATOID ARTHRITIS
     Route: 048
  8. ISCOTIN [Concomitant]
     Indication: ANTIBIOTIC PROPHYLAXIS
     Route: 048
  9. ADRENAL HORMONE PREPARATIONS [Concomitant]
     Indication: RHEUMATOID ARTHRITIS
  10. AZULFIDINE EN-TABS [Concomitant]
     Indication: RHEUMATOID ARTHRITIS
     Route: 048
  11. LOXONIN [Concomitant]
     Indication: RHEUMATOID ARTHRITIS
     Route: 048
  12. VOLTAREN [Concomitant]
     Indication: RHEUMATOID ARTHRITIS
     Dosage: ROUTE ^PR^
  13. LEUCOVORIN CALCIUM [Concomitant]
     Route: 048
  14. EUGLUCON [Concomitant]
     Indication: DIABETES MELLITUS
     Route: 048
  15. CYTOTEC [Concomitant]
     Route: 048
  16. BONALON [Concomitant]
     Indication: OSTEOPOROSIS
     Route: 048
  17. CALCIUM LACTATE [Concomitant]
     Route: 048
  18. MOHRUS TAPE [Concomitant]
     Dosage: ROUTE ^OD^
  19. MAGLAX [Concomitant]
     Indication: CONSTIPATION
     Route: 048

REACTIONS (3)
  - HAEMOPHILUS INFECTION [None]
  - PNEUMONIA [None]
  - STREPTOCOCCAL INFECTION [None]
